APPROVED DRUG PRODUCT: LENALIDOMIDE
Active Ingredient: LENALIDOMIDE
Strength: 5MG
Dosage Form/Route: CAPSULE;ORAL
Application: A213405 | Product #006 | TE Code: AB
Applicant: TORRENT PHARMACEUTICALS LTD
Approved: Feb 10, 2026 | RLD: No | RS: No | Type: RX